FAERS Safety Report 4363011-0 (Version None)
Quarter: 2004Q2

REPORT INFORMATION
  Report Type: 
  Country: None (occurrence: None)
  Receive Date: 20040518
  Receipt Date: 20040506
  Transmission Date: 20050107
  Serious: Yes (Life-Threatening)
  Sender: FDA-Public Use
  Company Number: 04P-056-0260281-00

PATIENT
  Age: 43 Year
  Sex: Female
  Weight: 60 kg

DRUGS (2)
  1. BIAXIN [Suspect]
     Indication: HELICOBACTER INFECTION
     Dosage: 500 MG, PER ORAL
     Route: 048
     Dates: start: 20040331, end: 20040301
  2. AMOXICILLIN TRIHYDRATE [Suspect]
     Indication: HELICOBACTER INFECTION
     Dosage: PER ORAL
     Route: 048
     Dates: start: 20040331, end: 20040301

REACTIONS (12)
  - DIARRHOEA [None]
  - FACE OEDEMA [None]
  - HYPOTENSION [None]
  - HYPOTHERMIA [None]
  - MALAISE [None]
  - PRURITUS [None]
  - RASH ERYTHEMATOUS [None]
  - RHINORRHOEA [None]
  - SHOCK [None]
  - TREMOR [None]
  - URTICARIA [None]
  - VOMITING [None]
